FAERS Safety Report 10684490 (Version 1)
Quarter: 2014Q4

REPORT INFORMATION
  Report Type: Spontaneous
  Country: GB (occurrence: GB)
  Receive Date: 20141231
  Receipt Date: 20141231
  Transmission Date: 20150529
  Serious: Yes (Other)
  Sender: FDA-Public Use
  Company Number: GB-ACCORD-027797

PATIENT
  Age: 62 Year
  Sex: Female
  Weight: 55.33 kg

DRUGS (2)
  1. ATENOLOL/ATENOLOL HYDROCHLORIDE [Concomitant]
  2. TOPIRAMATE. [Suspect]
     Active Substance: TOPIRAMATE
     Indication: MIGRAINE WITH AURA
     Route: 048

REACTIONS (4)
  - Oesophageal obstruction [Not Recovered/Not Resolved]
  - Dysphagia [Not Recovered/Not Resolved]
  - Gastrooesophageal reflux disease [Recovered/Resolved with Sequelae]
  - Neoplasm malignant [Not Recovered/Not Resolved]
